FAERS Safety Report 14605846 (Version 1)
Quarter: 2018Q1

REPORT INFORMATION
  Report Type: Spontaneous
  Country: US (occurrence: US)
  Receive Date: 20180306
  Receipt Date: 20180306
  Transmission Date: 20180509
  Serious: No
  Sender: FDA-Public Use
  Company Number: US-INTERCEPT-PMOCA2018000267

PATIENT
  Sex: Female

DRUGS (7)
  1. URSODIOL. [Concomitant]
     Active Substance: URSODIOL
     Dosage: 500 MG, BID
     Route: 048
  2. GABAPENTIN. [Concomitant]
     Active Substance: GABAPENTIN
     Dosage: 300 MG, QHS
     Route: 048
  3. OCALIVA [Suspect]
     Active Substance: OBETICHOLIC ACID
     Dosage: 5 MG, QD
     Route: 048
     Dates: start: 20170718
  4. MERCAPTOPURINE. [Concomitant]
     Active Substance: MERCAPTOPURINE
     Dosage: 50 MG, QD
     Route: 048
  5. CHOLESTYRAMINE. [Concomitant]
     Active Substance: CHOLESTYRAMINE
     Dosage: 4 UNK, BID
     Route: 048
  6. VITAMIN D                          /00107901/ [Concomitant]
     Active Substance: ERGOCALCIFEROL
     Dosage: 1000 UNK, QD
  7. AMITRIPTYLINE [Concomitant]
     Active Substance: AMITRIPTYLINE
     Dosage: 25 MG, QD
     Route: 048

REACTIONS (8)
  - Osteopenia [Unknown]
  - Arthralgia [Unknown]
  - Peripheral swelling [Unknown]
  - Fatigue [Unknown]
  - Pruritus [Unknown]
  - Constipation [Unknown]
  - Depression [Unknown]
  - Abdominal pain [Unknown]
